FAERS Safety Report 23332424 (Version 1)
Quarter: 2023Q4

REPORT INFORMATION
  Report Type: Spontaneous
  Country: IQ (occurrence: IQ)
  Receive Date: 20231222
  Receipt Date: 20231222
  Transmission Date: 20240110
  Serious: Yes (Other)
  Sender: FDA-Public Use
  Company Number: IQ-009507513-2312IRQ007717

PATIENT
  Age: 56 Year
  Sex: Male

DRUGS (2)
  1. KEYTRUDA [Suspect]
     Active Substance: PEMBROLIZUMAB
     Indication: Squamous cell carcinoma of lung
     Dosage: 400 MILLIGRAM, EVERY 6 WEEKS
     Dates: start: 202108, end: 202201
  2. KEYTRUDA [Suspect]
     Active Substance: PEMBROLIZUMAB
     Dosage: 200 MILLIGRAM, 9 CYCLES
     Dates: start: 202210, end: 202304

REACTIONS (4)
  - Chemotherapy [Recovered/Resolved]
  - Malignant neoplasm progression [Unknown]
  - Product availability issue [Unknown]
  - Product use in unapproved indication [Unknown]

NARRATIVE: CASE EVENT DATE: 20220301
